FAERS Safety Report 7969383 (Version 3)
Quarter: 2012Q4

REPORT INFORMATION
  Report Type: 
  Country: SI (occurrence: SI)
  Receive Date: 20110601
  Receipt Date: 20121008
  Transmission Date: 20130627
  Serious: Yes (Death)
  Sender: FDA-Public Use
  Company Number: SI-ROCHE-779719

PATIENT
  Age: 68 Year
  Sex: Female

DRUGS (3)
  1. MIRCERA [Suspect]
     Indication: NEPHROGENIC ANAEMIA
     Route: 042
  2. VENOFER [Concomitant]
     Dosage: reported as venofer 100 mg/14 days
     Route: 065
  3. CARENAL [Concomitant]
     Route: 065

REACTIONS (2)
  - Cardiac arrest [Fatal]
  - General physical health deterioration [Fatal]
